FAERS Safety Report 15414473 (Version 2)
Quarter: 2018Q4

REPORT INFORMATION
  Report Type: Spontaneous
  Country: CH (occurrence: CH)
  Receive Date: 20180921
  Receipt Date: 20181105
  Transmission Date: 20190204
  Serious: Yes (Hospitalization, Other)
  Sender: FDA-Public Use
  Company Number: CH-ELI_LILLY_AND_COMPANY-CH201809004603

PATIENT
  Age: 81 Year
  Sex: Female

DRUGS (2)
  1. SEROQUEL [Suspect]
     Active Substance: QUETIAPINE FUMARATE
     Indication: PRODUCT USED FOR UNKNOWN INDICATION
     Dosage: UNK UNK, UNKNOWN
     Route: 065
  2. FLUCTINE 20MG [Suspect]
     Active Substance: FLUOXETINE HYDROCHLORIDE
     Indication: DEPRESSION
     Dosage: UP TO 3X20MG/D
     Route: 065

REACTIONS (8)
  - Spinal pain [Unknown]
  - Dyskinesia [Unknown]
  - Drug resistance [Unknown]
  - Back pain [Not Recovered/Not Resolved]
  - Organising pneumonia [Unknown]
  - Condition aggravated [Unknown]
  - Lumbar vertebral fracture [Unknown]
  - Extrapyramidal disorder [Unknown]
